FAERS Safety Report 17029865 (Version 2)
Quarter: 2020Q4

REPORT INFORMATION
  Report Type: Report from Study
  Country: ZA (occurrence: ZA)
  Receive Date: 20191114
  Receipt Date: 20201127
  Transmission Date: 20210113
  Serious: Yes (Other)
  Sender: FDA-Public Use
  Company Number: NVSC2019ZA032049

PATIENT
  Age: 39 Year
  Sex: Female

DRUGS (2)
  1. TUVIGIN [Suspect]
     Active Substance: FINGOLIMOD HYDROCHLORIDE
     Indication: RELAPSING-REMITTING MULTIPLE SCLEROSIS
     Dosage: 0.5 MG, QD
     Route: 065
     Dates: start: 20181123
  2. TUVIGIN [Suspect]
     Active Substance: FINGOLIMOD HYDROCHLORIDE
     Dosage: 0.5 MG, QOD
     Route: 065

REACTIONS (6)
  - Lymphocyte count abnormal [Unknown]
  - Hypoaesthesia [Unknown]
  - Expanded disability status scale [Unknown]
  - Multiple sclerosis relapse [Unknown]
  - Nystagmus [Unknown]
  - Vertigo [Unknown]

NARRATIVE: CASE EVENT DATE: 201908
